FAERS Safety Report 5097727-8 (Version None)
Quarter: 2006Q3

REPORT INFORMATION
  Report Type: 
  Country: None (occurrence: None)
  Receive Date: 20060901
  Receipt Date: 20060823
  Transmission Date: 20061208
  Serious: Yes (Hospitalization)
  Sender: FDA-Public Use
  Company Number: 2006-143447-NL

PATIENT
  Age: 27 Year
  Sex: Female
  Weight: 63.5 kg

DRUGS (4)
  1. NUVARING [Suspect]
     Indication: CONTRACEPTION
     Dosage: VAGINAL, 3 WEEKS IN, 1 WEEK OUT
     Dates: start: 20020101
  2. ALLERGY MEDICATION (NOS) [Concomitant]
  3. MULTI-VITAMIN [Concomitant]
  4. ACIDOPHILUS [Concomitant]

REACTIONS (9)
  - ABDOMINAL PAIN UPPER [None]
  - DEHYDRATION [None]
  - DIARRHOEA [None]
  - FUNGAL INFECTION [None]
  - IRRITABLE BOWEL SYNDROME [None]
  - NAUSEA [None]
  - ORAL INTAKE REDUCED [None]
  - PYREXIA [None]
  - THERAPY NON-RESPONDER [None]
